FAERS Safety Report 7406339-X (Version None)
Quarter: 2011Q2

REPORT INFORMATION
  Report Type: 
  Country: None (occurrence: None)
  Receive Date: 20110411
  Receipt Date: 20110329
  Transmission Date: 20111010
  Serious: Yes (Other)
  Sender: FDA-Public Use
  Company Number: US-ELI_LILLY_AND_COMPANY-US201008000981

PATIENT
  Sex: Female

DRUGS (2)
  1. FORTEO [Suspect]
     Indication: OSTEOPOROSIS
     Dosage: 20 UG, DAILY (1/D)
     Dates: start: 20100507
  2. FORTEO [Suspect]
     Dosage: 20 UG, QD

REACTIONS (7)
  - NASOPHARYNGITIS [None]
  - PRODUCTIVE COUGH [None]
  - SINUSITIS [None]
  - MUSCLE SPASMS [None]
  - CHOLECYSTITIS [None]
  - CHOLELITHIASIS [None]
  - ABDOMINAL PAIN UPPER [None]
